FAERS Safety Report 9740720 (Version 4)
Quarter: 2014Q2

REPORT INFORMATION
  Report Type: Spontaneous
  Country: GB (occurrence: GB)
  Receive Date: 20131209
  Receipt Date: 20140620
  Transmission Date: 20141212
  Serious: Yes (Other)
  Sender: FDA-Public Use
  Company Number: GB-PFIZER INC-2013311355

PATIENT
  Age: 49 Year
  Sex: Female
  Weight: 80 kg

DRUGS (5)
  1. SERTRALINE HCL [Suspect]
     Indication: DEPRESSION
     Dosage: 100 MG, UNK
     Route: 048
     Dates: start: 20130730, end: 201311
  2. SERTRALINE HCL [Suspect]
     Dosage: 150 MG, 1X/DAY
     Route: 048
     Dates: start: 201311
  3. OXYCODONE [Concomitant]
     Indication: OSTEOARTHRITIS
     Dosage: 150 MG, UNK
     Route: 048
     Dates: start: 2012
  4. OXYCODONE [Concomitant]
     Indication: PAIN
  5. FENTANYL [Concomitant]
     Indication: ARTHRALGIA
     Dosage: 75 UG, UNK
     Route: 062
     Dates: start: 2012

REACTIONS (7)
  - Osteoarthritis [Not Recovered/Not Resolved]
  - Arthralgia [Not Recovered/Not Resolved]
  - Weight increased [Not Recovered/Not Resolved]
  - Flatulence [Not Recovered/Not Resolved]
  - Diarrhoea [Not Recovered/Not Resolved]
  - Abdominal pain [Not Recovered/Not Resolved]
  - Fear [Not Recovered/Not Resolved]
